FAERS Safety Report 21370297 (Version 2)
Quarter: 2022Q4

REPORT INFORMATION
  Report Type: Spontaneous
  Country: AU (occurrence: AU)
  Receive Date: 20220923
  Receipt Date: 20221124
  Transmission Date: 20230113
  Serious: Yes (Hospitalization, Other)
  Sender: FDA-Public Use
  Company Number: AU-SA-SAC20220922000296

PATIENT
  Age: 52 Year
  Sex: Female
  Weight: 93 kg

DRUGS (3)
  1. DUPIXENT [Suspect]
     Active Substance: DUPILUMAB
     Indication: Asthma
     Dosage: 300 MG, QOW
     Dates: start: 202112, end: 202203
  2. PREDNISONE [Concomitant]
     Active Substance: PREDNISONE
     Dosage: UNK
  3. MYCOPHENOLIC ACID [Concomitant]
     Active Substance: MYCOPHENOLIC ACID
     Dosage: UNK

REACTIONS (7)
  - Hypervolaemia [Unknown]
  - Haemoptysis [Unknown]
  - Lupus-like syndrome [Unknown]
  - Lupus pneumonitis [Unknown]
  - Systemic lupus erythematosus [Unknown]
  - Anticoagulation drug level abnormal [Unknown]
  - Asthma [Unknown]
